FAERS Safety Report 17294580 (Version 1)
Quarter: 2020Q1

REPORT INFORMATION
  Report Type: Spontaneous
  Country: GB (occurrence: GB)
  Receive Date: 20200121
  Receipt Date: 20200121
  Transmission Date: 20200409
  Serious: Yes (Life-Threatening, Hospitalization, Disabling)
  Sender: FDA-Public Use
  Company Number: GB-ASTRAZENECA-2020SE07858

PATIENT
  Age: 74 Year
  Sex: Female
  Weight: 60.3 kg

DRUGS (10)
  1. GAVISCON ADVANCE [Concomitant]
     Active Substance: POTASSIUM BICARBONATE\SODIUM ALGINATE
  2. NEDITOL [Concomitant]
     Active Substance: TOLTERODINE
  3. LOSARTAN. [Concomitant]
     Active Substance: LOSARTAN
  4. BECLOMETASONE [Concomitant]
     Active Substance: BECLOMETHASONE DIPROPIONATE
  5. GABAPENTIN. [Concomitant]
     Active Substance: GABAPENTIN
  6. OMEPRAZOLE. [Suspect]
     Active Substance: OMEPRAZOLE
     Indication: DYSPEPSIA
     Route: 048
     Dates: start: 20190801, end: 20191118
  7. ACETYLSALICYLIC ACID [Concomitant]
     Active Substance: ASPIRIN
  8. FUROSEMIDE. [Concomitant]
     Active Substance: FUROSEMIDE
  9. ATORVASTATIN [Concomitant]
     Active Substance: ATORVASTATIN
  10. COLECALCIFEROL [Concomitant]
     Active Substance: CHOLECALCIFEROL

REACTIONS (1)
  - Seizure [Recovered/Resolved with Sequelae]

NARRATIVE: CASE EVENT DATE: 20191118
